FAERS Safety Report 7437344-5 (Version None)
Quarter: 2011Q2

REPORT INFORMATION
  Report Type: 
  Country: None (occurrence: None)
  Receive Date: 20110426
  Receipt Date: 20110413
  Transmission Date: 20111010
  Serious: Yes (Other)
  Sender: FDA-Public Use
  Company Number: PHHY2011RU32368

PATIENT
  Age: 65 Year
  Sex: Female

DRUGS (1)
  1. DIOVAN [Suspect]
     Indication: HYPERTENSION
     Dosage: 80 MG, QD

REACTIONS (3)
  - ANGINA PECTORIS [None]
  - BLOOD PRESSURE INCREASED [None]
  - HEADACHE [None]
